FAERS Safety Report 8252129-8 (Version None)
Quarter: 2012Q2

REPORT INFORMATION
  Report Type: 
  Country: None (occurrence: None)
  Receive Date: 20120402
  Receipt Date: 20110309
  Transmission Date: 20120825
  Serious: No
  Sender: FDA-Public Use
  Company Number: US-ABBOTT-11P-163-0804278-00

PATIENT
  Sex: Male

DRUGS (5)
  1. LISINOPRIL [Concomitant]
     Indication: PRODUCT USED FOR UNKNOWN INDICATION
     Dosage: DAILY DOSE:  UNKNOWN
     Route: 065
  2. MORNIFLUMATE [Concomitant]
     Indication: PROSTATOMEGALY
     Dosage: DAILY DOSE:  UNKNOWN
     Route: 065
  3. SIMVASTATIN [Concomitant]
     Indication: PRODUCT USED FOR UNKNOWN INDICATION
     Dosage: DAILY DOSE:  UNKNOWN
     Route: 065
  4. TESTOSTERONE [Suspect]
     Indication: BLOOD TESTOSTERONE DECREASED
     Dosage: DAILY DOSE: 2.5 GRAM(S); AT HOUR OF SLEEP, VIA PUMP, DURATION: 2 MONTHS
     Route: 062
     Dates: start: 20110101
  5. FINASTERIDE [Concomitant]
     Indication: PROSTATOMEGALY
     Dosage: DAILY DOSE:  UNKNOWN
     Route: 065

REACTIONS (3)
  - DRUG ADMINISTERED AT INAPPROPRIATE SITE [None]
  - GYNAECOMASTIA [None]
  - APPLICATION SITE ERYTHEMA [None]
